FAERS Safety Report 7501621-X (Version None)
Quarter: 2011Q2

REPORT INFORMATION
  Report Type: 
  Country: None (occurrence: None)
  Receive Date: 20110524
  Receipt Date: 20110512
  Transmission Date: 20111010
  Serious: Yes (Life-Threatening)
  Sender: FDA-Public Use
  Company Number: US-WATSON-2011-07061

PATIENT
  Age: 35 Year
  Sex: Male

DRUGS (1)
  1. IBUPROFEN [Suspect]
     Indication: PAIN
     Dosage: OVER 30 TABLETS PER DAY
     Route: 048

REACTIONS (3)
  - OVERDOSE [None]
  - HYPOKALAEMIA [None]
  - PARALYSIS [None]
